FAERS Safety Report 23563415 (Version 1)
Quarter: 2024Q1

REPORT INFORMATION
  Report Type: Other
  Country: IN (occurrence: IN)
  Receive Date: 20240226
  Receipt Date: 20240226
  Transmission Date: 20240410
  Serious: Yes (Other)
  Sender: FDA-Public Use
  Company Number: IN-DEXPHARM-20240316

PATIENT
  Age: 18 Year
  Sex: Female

DRUGS (1)
  1. DICLOFENAC [Suspect]
     Active Substance: DICLOFENAC
     Indication: Toothache
     Dosage: INTRAMUSCULAR DICLOFENAC SODIUM INJECTION

REACTIONS (2)
  - Embolia cutis medicamentosa [Recovered/Resolved]
  - Gangrene [Recovered/Resolved]
